FAERS Safety Report 8203117 (Version 2)
Quarter: 2012Q4

REPORT INFORMATION
  Report Type: 
  Country: US (occurrence: US)
  Receive Date: 20111027
  Receipt Date: 20121112
  Transmission Date: 20130627
  Serious: Yes (Other)
  Sender: FDA-Public Use
  Company Number: US-ELI_LILLY_AND_COMPANY-US201110004434

PATIENT
  Age: 65 None
  Sex: Female

DRUGS (14)
  1. BYETTA [Suspect]
     Dosage: 10 ug, bid
     Route: 058
  2. BYETTA [Suspect]
     Dosage: 5 ug, bid
     Route: 058
     Dates: start: 20080604, end: 200809
  3. ACCUPRIL [Concomitant]
     Indication: HYPERTENSION
     Dosage: 20 mg, each morning
     Route: 048
  4. HYDROCHLOROTHIAZIDE [Concomitant]
     Dosage: 25 mg, qd
     Route: 048
  5. GLUCOPHAGE [Concomitant]
     Dosage: 850 mg, bid
     Route: 048
  6. ASPIRIN [Concomitant]
     Dosage: 81 mg, qd
     Route: 048
  7. DETROL LA [Concomitant]
     Dosage: 4 mg, qd
     Route: 048
  8. ZOCOR [Concomitant]
     Indication: HYPERCHOLESTEROLAEMIA
     Dosage: 20 mg, each evening
     Route: 048
  9. LOTRISONE [Concomitant]
     Dosage: UNK, qd
  10. OCUVITE [Concomitant]
  11. ZYRTEC [Concomitant]
     Dosage: 10 mg, each evening
     Route: 048
  12. MENTAX [Concomitant]
     Dosage: 1 %, bid
  13. RESTORIL [Concomitant]
     Dosage: 7.5 mg, prn
  14. HEPATITIS B VACCINE [Concomitant]

REACTIONS (3)
  - Renal failure chronic [Unknown]
  - Renal failure acute [Unknown]
  - Weight decreased [Recovering/Resolving]
